FAERS Safety Report 10025424 (Version 3)
Quarter: 2015Q2

REPORT INFORMATION
  Report Type: Spontaneous
  Country: BR (occurrence: BR)
  Receive Date: 20140320
  Receipt Date: 20150518
  Transmission Date: 20150821
  Serious: Yes (Other)
  Sender: FDA-Public Use
  Company Number: BR-PFIZER INC-2014078753

PATIENT
  Age: 69 Year
  Sex: Female
  Weight: 84 kg

DRUGS (19)
  1. SPIRONOLACTONE. [Concomitant]
     Active Substance: SPIRONOLACTONE
     Dosage: 150 MG WEEKLY (50 MG, AT MONDAYS, WEDNESDAYS AND FRIDAYS)
  2. LISADOR [Concomitant]
     Active Substance: DIPYRONE\PROMETHAZINE HYDROCHLORIDE
     Dosage: AS NEEDED
  3. PANTOPRAZOLE [Concomitant]
     Active Substance: PANTOPRAZOLE SODIUM
     Dosage: 40 MG, 1X/DAY
  4. DECADRON [Concomitant]
     Active Substance: DEXAMETHASONE
     Dosage: 4 MG, UNK
  5. ADRIBLASTINA RD [Suspect]
     Active Substance: DOXORUBICIN HYDROCHLORIDE
     Dosage: 100 MG, UNK
     Route: 042
     Dates: start: 20131216
  6. GLIMEPIRIDE. [Concomitant]
     Active Substance: GLIMEPIRIDE
     Dosage: 4 MG, 1X/DAY
  7. ALLOPURINOL. [Concomitant]
     Active Substance: ALLOPURINOL
     Dosage: 100 MG, 1X/DAY
  8. ARADOIS [Concomitant]
     Active Substance: LOSARTAN POTASSIUM
     Dosage: 50 MG, 1X/DAY
  9. COLECALCIFEROL [Concomitant]
     Active Substance: CHOLECALCIFEROL
     Dosage: STRENGTH 200 MG, 20 DROPS, 1X/WEEK
  10. TYLEX [Concomitant]
     Active Substance: ACETAMINOPHEN\CODEINE PHOSPHATE
     Dosage: AS NEEDED
  11. MESTINON [Concomitant]
     Active Substance: PYRIDOSTIGMINE BROMIDE
     Dosage: 60 MG, 4X/DAY
  12. VYTORIN [Concomitant]
     Active Substance: EZETIMIBE\SIMVASTATIN
     Dosage: 10/20, FROM MONDAY TO FRIDAY
  13. PANTOGAR [Concomitant]
     Active Substance: AMINOBENZOIC ACID\CALCIUM PANTOTHENATE\CYSTINE\KERATIN\THIAMINE MONONITRATE
     Dosage: 1X/DAY
  14. VONAU [Concomitant]
     Active Substance: ONDANSETRON HYDROCHLORIDE
     Dosage: 8 MG, AS NEEDED
  15. AMLODIPINE/HYDROCHLOROTHIAZIDE [Concomitant]
     Dosage: 50 MG, 1X/DAY
  16. ADRIBLASTINA RD [Suspect]
     Active Substance: DOXORUBICIN HYDROCHLORIDE
     Dosage: 10 MG, UNK
     Route: 042
  17. GALVUS [Concomitant]
     Active Substance: VILDAGLIPTIN
     Dosage: 50 MG, 1X/DAY
  18. INSULIN [Concomitant]
     Active Substance: INSULIN NOS
     Indication: DIABETES MELLITUS
  19. FOSAPREPITANT DIMEGLUMINE [Suspect]
     Active Substance: FOSAPREPITANT DIMEGLUMINE
     Dosage: UNK
     Route: 042
     Dates: start: 20131216

REACTIONS (3)
  - Neutropenia [Unknown]
  - Phlebitis [Recovering/Resolving]
  - Diabetes mellitus [Not Recovered/Not Resolved]

NARRATIVE: CASE EVENT DATE: 201312
